FAERS Safety Report 24173622 (Version 1)
Quarter: 2024Q3

REPORT INFORMATION
  Report Type: Report from Study
  Country: CA (occurrence: CA)
  Receive Date: 20240805
  Receipt Date: 20240805
  Transmission Date: 20241016
  Serious: Yes (Other)
  Sender: BIOCON
  Company Number: CA-BIOCON BIOLOGICS LIMITED-BBL2024004886

PATIENT

DRUGS (1)
  1. HULIO [Suspect]
     Active Substance: ADALIMUMAB-FKJP
     Indication: Rheumatoid arthritis
     Dosage: 40 MG, Q2W
     Route: 058
     Dates: start: 20240624

REACTIONS (10)
  - Pruritus [Recovering/Resolving]
  - Feeling hot [Recovering/Resolving]
  - Lip dry [Recovering/Resolving]
  - Lip haemorrhage [Unknown]
  - Chapped lips [Unknown]
  - Erythema [Recovering/Resolving]
  - Rash [Unknown]
  - Injection site bruising [Recovering/Resolving]
  - Injection site pruritus [Unknown]
  - Injection site erythema [Unknown]
